FAERS Safety Report 6578548-3 (Version None)
Quarter: 2010Q1

REPORT INFORMATION
  Report Type: 
  Country: None (occurrence: None)
  Receive Date: 20100211
  Receipt Date: 20100201
  Transmission Date: 20100710
  Serious: Yes (Hospitalization)
  Sender: FDA-Public Use
  Company Number: US-ABBOTT-10P-163-0623594-00

PATIENT
  Sex: Female

DRUGS (2)
  1. LUPRON DEPOT [Suspect]
     Indication: UTERINE LEIOMYOMA
     Route: 030
     Dates: start: 20090801, end: 20090901
  2. MEDROL [Suspect]
     Indication: TRACHEAL STENOSIS
     Dates: start: 20091028

REACTIONS (12)
  - ABASIA [None]
  - ABDOMINAL DISTENSION [None]
  - ASTHENIA [None]
  - BONE PAIN [None]
  - DIZZINESS [None]
  - DRY SKIN [None]
  - DYSPNOEA [None]
  - NASAL DISCOMFORT [None]
  - NASAL INFLAMMATION [None]
  - NAUSEA [None]
  - SKIN EXFOLIATION [None]
  - TRACHEAL STENOSIS [None]
